FAERS Safety Report 6221552-5 (Version None)
Quarter: 2009Q2

REPORT INFORMATION
  Report Type: 
  Country: None (occurrence: None)
  Receive Date: 20090608
  Receipt Date: 20090521
  Transmission Date: 20091009
  Serious: Yes (Other)
  Sender: FDA-Public Use
  Company Number: DSA_33760_2009

PATIENT
  Sex: Female

DRUGS (3)
  1. DILTIAZEM HCL [Suspect]
     Indication: DRUG USE FOR UNKNOWN INDICATION
     Dosage: (DF)
  2. ARICEPT [Suspect]
     Indication: DRUG USE FOR UNKNOWN INDICATION
     Dosage: (10 MG QD ORAL), (5 MG QD ORAL)
     Route: 048
  3. ZONEGRAN [Concomitant]

REACTIONS (2)
  - CORONARY ARTERY DISEASE [None]
  - FALL [None]
